FAERS Safety Report 7864053-0 (Version None)
Quarter: 2011Q4

REPORT INFORMATION
  Report Type: 
  Country: None (occurrence: None)
  Receive Date: 20111026
  Receipt Date: 20111020
  Transmission Date: 20120403
  Serious: Yes (Death)
  Sender: FDA-Public Use
  Company Number: 2011SP045090

PATIENT
  Age: 58 Year
  Sex: Female

DRUGS (4)
  1. NITRAZEPAM [Concomitant]
  2. MIRTAZAPINE [Suspect]
     Indication: DEPRESSION
     Dosage: 15 MG;QD;PO
     Route: 048
     Dates: start: 20110912
  3. PAROXETINE HCL [Concomitant]
  4. LORAZEPAM [Concomitant]

REACTIONS (5)
  - HEADACHE [None]
  - ANXIETY [None]
  - INSOMNIA [None]
  - DIARRHOEA [None]
  - DEPRESSED MOOD [None]
